FAERS Safety Report 7080713-6 (Version None)
Quarter: 2010Q4

REPORT INFORMATION
  Report Type: 
  Country: None (occurrence: None)
  Receive Date: 20101025
  Receipt Date: 20101020
  Transmission Date: 20110411
  Serious: Yes (Other)
  Sender: FDA-Public Use
  Company Number: A0887837A

PATIENT
  Age: 39 Year
  Sex: Female

DRUGS (1)
  1. UREA HYDROGEN PEROXIDE (FORMULATION UNKNOWN) [Suspect]
     Dosage: EAR DROPS

REACTIONS (2)
  - DEAFNESS UNILATERAL [None]
  - EAR DISCOMFORT [None]
